FAERS Safety Report 7491113-9 (Version None)
Quarter: 2011Q2

REPORT INFORMATION
  Report Type: 
  Country: None (occurrence: None)
  Receive Date: 20110519
  Receipt Date: 20110511
  Transmission Date: 20111010
  Serious: Yes (Death, Other)
  Sender: FDA-Public Use
  Company Number: EC-ROCHE-776439

PATIENT
  Sex: Female
  Weight: 46.7 kg

DRUGS (5)
  1. LEUCOVORIN CALCIUM [Concomitant]
     Indication: COLORECTAL CANCER
     Dosage: FREQUENCY: DAILY FOR 5 DAYS EVERY 28 DAYS
     Route: 042
     Dates: start: 20090201
  2. AVASTIN [Suspect]
     Indication: COLORECTAL CANCER
     Route: 042
     Dates: start: 20090216
  3. XELODA [Suspect]
     Indication: COLORECTAL CANCER
     Route: 048
     Dates: start: 20090210
  4. OXALIPLATIN [Concomitant]
     Indication: COLORECTAL CANCER
     Route: 042
     Dates: start: 20090201
  5. FLUOROURACIL [Concomitant]
     Indication: COLORECTAL CANCER
     Dosage: FREQUENCY: DAILY FOR 5 DAYS EVERY 28 DAYS.
     Route: 042
     Dates: start: 20090201

REACTIONS (3)
  - LOSS OF CONSCIOUSNESS [None]
  - VARICES OESOPHAGEAL [None]
  - MOUTH HAEMORRHAGE [None]
